FAERS Safety Report 7384677-7 (Version None)
Quarter: 2011Q1

REPORT INFORMATION
  Report Type: 
  Country: None (occurrence: None)
  Receive Date: 20110330
  Receipt Date: 20110325
  Transmission Date: 20110831
  Serious: Yes (Other)
  Sender: FDA-Public Use
  Company Number: US-ABBOTT-11P-163-0714626-00

PATIENT
  Age: 46 Year
  Weight: 64.468 kg

DRUGS (4)
  1. SYNTHROID [Suspect]
     Indication: HYPOTHYROIDISM
  2. CLONAZEPAM [Concomitant]
     Indication: PRODUCT USED FOR UNKNOWN INDICATION
  3. TRAVATAN [Concomitant]
     Indication: INTRAOCULAR PRESSURE TEST ABNORMAL
     Dates: start: 20090101
  4. LUPRON DEPOT [Suspect]
     Indication: ENDOMETRIOSIS
     Dates: start: 20101001, end: 20101101

REACTIONS (21)
  - BREAST ENLARGEMENT [None]
  - ANGER [None]
  - NAUSEA [None]
  - ARTHRALGIA [None]
  - MIGRAINE [None]
  - BLOOD CHOLESTEROL INCREASED [None]
  - AGGRESSION [None]
  - BONE PAIN [None]
  - DISTURBANCE IN ATTENTION [None]
  - HOT FLUSH [None]
  - PAIN [None]
  - DRUG INTOLERANCE [None]
  - BLOOD THYROID STIMULATING HORMONE ABNORMAL [None]
  - MOOD SWINGS [None]
  - INSOMNIA [None]
  - FATIGUE [None]
  - WEIGHT INCREASED [None]
  - MEMORY IMPAIRMENT [None]
  - VISION BLURRED [None]
  - NIGHT SWEATS [None]
  - VOMITING [None]
